FAERS Safety Report 6110734-9 (Version None)
Quarter: 2009Q1

REPORT INFORMATION
  Report Type: 
  Country: None (occurrence: None)
  Receive Date: 20090309
  Receipt Date: 20090303
  Transmission Date: 20090719
  Serious: Yes (Life-Threatening)
  Sender: FDA-Public Use
  Company Number: ADE2009-0463

PATIENT
  Age: 83 Year
  Sex: Female
  Weight: 10 kg

DRUGS (7)
  1. GABAPENTIN [Suspect]
     Indication: NEURALGIA
  2. CARBIDOPA AND LEVODOPA [Concomitant]
  3. AMANTADINE HCL [Concomitant]
  4. KETIAPIN [Concomitant]
  5. SERTRALINE [Concomitant]
  6. WARFARIN SODIUM [Concomitant]
  7. PROPAFENONE HCL [Concomitant]

REACTIONS (4)
  - CONDITION AGGRAVATED [None]
  - DYSKINESIA [None]
  - DYSSTASIA [None]
  - RIB FRACTURE [None]
